FAERS Safety Report 4354909-8 (Version None)
Quarter: 2004Q2

REPORT INFORMATION
  Report Type: 
  Country: None (occurrence: None)
  Receive Date: 20040507
  Receipt Date: 20040503
  Transmission Date: 20050107
  Serious: Yes (Hospitalization)
  Sender: FDA-Public Use
  Company Number: US-MERCK-0405USA00099

PATIENT
  Age: 28 Year
  Sex: Female

DRUGS (4)
  1. CANCIDAS [Suspect]
     Indication: OESOPHAGEAL CANDIDIASIS
     Route: 041
     Dates: start: 20040421, end: 20040421
  2. CANCIDAS [Suspect]
     Route: 042
     Dates: start: 20040422, end: 20040430
  3. CANCIDAS [Suspect]
     Indication: CANDIDIASIS
     Route: 041
     Dates: start: 20040421, end: 20040421
  4. CANCIDAS [Suspect]
     Route: 042
     Dates: start: 20040422, end: 20040430

REACTIONS (1)
  - DRUG INEFFECTIVE [None]
